FAERS Safety Report 7159202-6 (Version None)
Quarter: 2010Q4

REPORT INFORMATION
  Report Type: 
  Country: None (occurrence: None)
  Receive Date: 20101214
  Receipt Date: 20100813
  Transmission Date: 20110411
  Serious: No
  Sender: FDA-Public Use
  Company Number: US-ASTRAZENECA-2010SE38204

PATIENT
  Sex: Female
  Weight: 81.6 kg

DRUGS (6)
  1. CRESTOR [Suspect]
     Indication: BLOOD CHOLESTEROL ABNORMAL
     Route: 048
  2. VERAPAMIL EXTENDED-RELEASE [Concomitant]
     Indication: BLOOD PRESSURE ABNORMAL
  3. FEUROSAMIDE [Concomitant]
     Indication: DIURETIC THERAPY
  4. ASPIRIN [Concomitant]
     Indication: THROMBOSIS
  5. PLAVIX [Concomitant]
     Indication: COAGULOPATHY
  6. METHEMOZILE [Concomitant]
     Indication: THYROID DISORDER

REACTIONS (4)
  - ABDOMINAL PAIN [None]
  - HEADACHE [None]
  - MUSCULOSKELETAL STIFFNESS [None]
  - NAUSEA [None]
